FAERS Safety Report 4461294-X (Version None)
Quarter: 2004Q3

REPORT INFORMATION
  Report Type: 
  Country: None (occurrence: None)
  Receive Date: 20040928
  Receipt Date: 20031101
  Transmission Date: 20050211
  Serious: Yes (Life-Threatening, Hospitalization)
  Sender: FDA-Public Use
  Company Number: GB-GLAXOSMITHKLINE-B0313532A

PATIENT
  Age: 59 Year
  Sex: Female

DRUGS (3)
  1. CIMETIDINE [Suspect]
     Indication: ABDOMINAL PAIN
     Dosage: 400MG PER DAY
     Route: 048
  2. METFORMIN HCL [Suspect]
     Indication: DIABETES MELLITUS NON-INSULIN-DEPENDENT
     Dosage: 500MG THREE TIMES PER DAY
     Route: 048
  3. ORLISTAT [Suspect]
     Dosage: 120MG THREE TIMES PER DAY
     Route: 048

REACTIONS (12)
  - ABDOMINAL PAIN [None]
  - ACUTE PRERENAL FAILURE [None]
  - ASTHENIA [None]
  - CIRCULATORY COLLAPSE [None]
  - DEPRESSED LEVEL OF CONSCIOUSNESS [None]
  - DIZZINESS [None]
  - DRUG INTERACTION [None]
  - DYSARTHRIA [None]
  - LACTIC ACIDOSIS [None]
  - LOOSE STOOLS [None]
  - RENAL FAILURE ACUTE [None]
  - VISION BLURRED [None]
